FAERS Safety Report 4713922-9 (Version None)
Quarter: 2005Q3

REPORT INFORMATION
  Report Type: 
  Country: None (occurrence: None)
  Receive Date: 20050712
  Receipt Date: 20050627
  Transmission Date: 20060218
  Serious: Yes (Hospitalization, Other)
  Sender: FDA-Public Use
  Company Number: 2005BI003595

PATIENT
  Age: 52 Year
  Sex: Female

DRUGS (14)
  1. AVONEX [Suspect]
     Indication: MULTIPLE SCLEROSIS
     Dosage: 30 UG; QW; IM
     Route: 030
     Dates: start: 20020907, end: 20030801
  2. AVONEX [Suspect]
     Indication: MULTIPLE SCLEROSIS
     Dosage: 30 UG;QW; IM
     Route: 030
     Dates: start: 20030801, end: 20050301
  3. STEROIDS [Concomitant]
  4. WELLBUTRIN [Concomitant]
  5. ATIVAN [Concomitant]
  6. AMBIEN [Concomitant]
  7. BACLOFEN [Concomitant]
  8. TEGRETOL [Concomitant]
  9. SOLU-MEDROL [Concomitant]
  10. AMANTADINE [Concomitant]
  11. PREDNISONE [Concomitant]
  12. PROCARDIA [Concomitant]
  13. SKELEXIN [Concomitant]
  14. URECHOLINE [Concomitant]

REACTIONS (10)
  - ABASIA [None]
  - DYSPNOEA [None]
  - FALL [None]
  - HALLUCINATION [None]
  - INCISION SITE COMPLICATION [None]
  - MULTIPLE SCLEROSIS RELAPSE [None]
  - MYOCARDIAL INFARCTION [None]
  - POSTOPERATIVE INFECTION [None]
  - WOUND EVISCERATION [None]
  - WOUND NECROSIS [None]
